FAERS Safety Report 4790302-1 (Version None)
Quarter: 2005Q4

REPORT INFORMATION
  Report Type: 
  Country: None (occurrence: None)
  Receive Date: 20051005
  Receipt Date: 20050921
  Transmission Date: 20060501
  Serious: Yes (Other)
  Sender: FDA-Public Use
  Company Number: USA0509108833

PATIENT
  Age: 15 Year
  Sex: Male

DRUGS (2)
  1. STRATTERA [Suspect]
     Dosage: UNK
     Route: 065
  2. EFFEXOR XR [Concomitant]

REACTIONS (2)
  - LEGAL PROBLEM [None]
  - SEXUAL ABUSE [None]
